FAERS Safety Report 8824630 (Version 1)
Quarter: 2012Q4

REPORT INFORMATION
  Report Type: 
  Country: US (occurrence: US)
  Receive Date: 20121004
  Receipt Date: 20121004
  Transmission Date: 20130627
  Serious: No
  Sender: FDA-Public Use
  Company Number: PHEH2012US019116

PATIENT
  Age: 75 Year
  Sex: Male

DRUGS (7)
  1. TASIGNA [Suspect]
     Indication: CHRONIC MYELOID LEUKAEMIA
     Dosage: 300 mg, BID
     Route: 048
     Dates: start: 20120616
  2. VITAMIN C [Concomitant]
  3. MVI [Concomitant]
  4. SIMVASTATIN [Concomitant]
  5. DILTIAZEM [Concomitant]
  6. KLOR-CON [Concomitant]
  7. AVODART [Concomitant]

REACTIONS (1)
  - Arthralgia [Recovering/Resolving]
